FAERS Safety Report 6366204-6 (Version None)
Quarter: 2009Q3

REPORT INFORMATION
  Report Type: 
  Country: None (occurrence: None)
  Receive Date: 20090921
  Receipt Date: 20090909
  Transmission Date: 20100115
  Serious: No
  Sender: FDA-Public Use
  Company Number: US-B.I. PHARMACEUTICALS,INC./RIDGEFIELD-2009-BP-10577BP

PATIENT
  Age: 10 Year
  Sex: Male

DRUGS (2)
  1. CATAPRES-TTS-1 [Suspect]
     Indication: TIC
     Dosage: 0.1 MG
     Route: 061
     Dates: start: 20090201
  2. UNSPECIFIED MEDICATION [Concomitant]
     Indication: FOOD ALLERGY

REACTIONS (1)
  - FATIGUE [None]
